FAERS Safety Report 4487745-2 (Version None)
Quarter: 2004Q4

REPORT INFORMATION
  Report Type: 
  Country: None (occurrence: None)
  Receive Date: 20041025
  Receipt Date: 20041001
  Transmission Date: 20050328
  Serious: No
  Sender: FDA-Public Use
  Company Number: 8995

PATIENT
  Age: 49 Year
  Sex: Male

DRUGS (11)
  1. METHOTREXATE [Suspect]
     Indication: RHEUMATOID ARTHRITIS
     Dosage: 27.5 MG WEEKLY, SC
     Route: 058
     Dates: start: 20010201, end: 20040630
  2. ETANERCEPT [Suspect]
     Indication: RHEUMATOID ARTHRITIS
     Dosage: 25 MG 2/WK, SC
     Route: 058
     Dates: start: 20010201, end: 20040401
  3. ETANERCEPT [Suspect]
     Indication: RHEUMATOID ARTHRITIS
     Dosage: 25 MG 2/WK, SC
     Route: 058
     Dates: start: 20040101, end: 20040630
  4. PREDNISOLONE [Concomitant]
  5. CELECOXIB [Concomitant]
  6. DOMPERIDONE [Concomitant]
  7. DOXAZOSIN [Concomitant]
  8. ALENDRONATE SODIUM [Concomitant]
  9. FOLIC ACID [Concomitant]
  10. DIHYDROCODEINE [Concomitant]
  11. RISEDRONIC ACID [Concomitant]

REACTIONS (6)
  - DRUG INTERACTION [None]
  - HAEMOPHILUS INFECTION [None]
  - LOWER RESPIRATORY TRACT INFECTION [None]
  - PNEUMONIA [None]
  - SPUTUM CULTURE POSITIVE [None]
  - THERAPY NON-RESPONDER [None]
